FAERS Safety Report 8287534-7 (Version None)
Quarter: 2012Q2

REPORT INFORMATION
  Report Type: 
  Country: None (occurrence: None)
  Receive Date: 20120416
  Receipt Date: 20120409
  Transmission Date: 20120825
  Serious: Yes (Other)
  Sender: FDA-Public Use
  Company Number: US-BAYER-2012-034914

PATIENT
  Age: 82 Year
  Sex: Male
  Weight: 57 kg

DRUGS (1)
  1. CITRACAL PETITES [Suspect]
     Dosage: PACKAGE SIZE: 100S
     Route: 048
     Dates: start: 20120401, end: 20120401

REACTIONS (1)
  - CHOKING [None]
